FAERS Safety Report 5200806-5 (Version None)
Quarter: 2006Q4

REPORT INFORMATION
  Report Type: 
  Country: None (occurrence: None)
  Receive Date: 20061016
  Receipt Date: 20060709
  Transmission Date: 20070319
  Serious: No
  Sender: FDA-Public Use
  Company Number: 2006SP002695

PATIENT
  Age: 20 Year
  Sex: Male
  Weight: 74.8435 kg

DRUGS (2)
  1. LUNESTA [Suspect]
     Indication: INSOMNIA
     Dosage: 2 MG; HS; ORAL;  3 MG; HS; ORAL
     Route: 048
     Dates: start: 20051101, end: 20060401
  2. LUNESTA [Suspect]
     Indication: INSOMNIA
     Dosage: 2 MG; HS; ORAL;  3 MG; HS; ORAL
     Route: 048
     Dates: start: 20060601

REACTIONS (1)
  - DYSGEUSIA [None]
